FAERS Safety Report 10384916 (Version 1)
Quarter: 2014Q3

REPORT INFORMATION
  Report Type: Spontaneous
  Country: US (occurrence: None)
  Receive Date: 20140813
  Receipt Date: 20140813
  Transmission Date: 20150326
  Serious: Yes (Other)
  Sender: FDA-Public Use
  Company Number: None

PATIENT
  Age: 30 Year
  Sex: Male
  Weight: 77.11 kg

DRUGS (1)
  1. ZUBSOLV [Suspect]
     Active Substance: BUPRENORPHINE HYDROCHLORIDE\NALOXONE HYDROCHLORIDE
     Indication: DRUG DEPENDENCE
     Dosage: 1-2  ONCE DAILY TAKEN UNDER THE TONGUE
     Route: 060
     Dates: start: 20140724, end: 20140812

REACTIONS (9)
  - Vomiting [None]
  - Myalgia [None]
  - Aphagia [None]
  - Muscle spasms [None]
  - Drug withdrawal syndrome [None]
  - Chills [None]
  - Headache [None]
  - Insomnia [None]
  - Product substitution issue [None]

NARRATIVE: CASE EVENT DATE: 20140802
